FAERS Safety Report 22173317 (Version 1)
Quarter: 2023Q2

REPORT INFORMATION
  Report Type: Spontaneous
  Country: US (occurrence: US)
  Receive Date: 20230404
  Receipt Date: 20230404
  Transmission Date: 20230722
  Serious: Yes (Other)
  Sender: FDA-Public Use
  Company Number: US-002147023-NVSC2023US076525

PATIENT
  Age: 85 Year
  Sex: Female

DRUGS (4)
  1. BEOVU [Suspect]
     Active Substance: BROLUCIZUMAB-DBLL
     Indication: Age-related macular degeneration
     Dosage: UNK (LOADING DOSE, LEFT EYE, OS)
     Route: 065
     Dates: start: 20201105
  2. BEOVU [Suspect]
     Active Substance: BROLUCIZUMAB-DBLL
     Dosage: UNK (LOADING DOSE, LEFT EYE, OS)
     Route: 065
     Dates: start: 20201203
  3. BEOVU [Suspect]
     Active Substance: BROLUCIZUMAB-DBLL
     Dosage: UNK (LOADING DOSE, LEFT EYE, OS)
     Route: 065
     Dates: start: 20210106
  4. BEOVU [Suspect]
     Active Substance: BROLUCIZUMAB-DBLL
     Dosage: UNK (FIRST INJECTION POST LOADING INJECTION, MOST RECENT ONE, LEFT EYE, OS)
     Route: 065
     Dates: start: 20210303

REACTIONS (6)
  - Uveitis [Recovered/Resolved]
  - Retinal vascular occlusion [Recovered/Resolved]
  - Chorioretinitis [Recovered/Resolved]
  - Retinal vasculitis [Recovered/Resolved]
  - Vitreous floaters [Unknown]
  - Visual impairment [Unknown]

NARRATIVE: CASE EVENT DATE: 20210414
